FAERS Safety Report 8510163-4 (Version None)
Quarter: 2012Q3

REPORT INFORMATION
  Report Type: 
  Country: None (occurrence: None)
  Receive Date: 20120713
  Receipt Date: 20120703
  Transmission Date: 20120928
  Serious: No
  Sender: FDA-Public Use
  Company Number: US-ASTRAZENECA-2012SE45918

PATIENT
  Age: 50 Year
  Sex: Female
  Weight: 59.9 kg

DRUGS (2)
  1. SYMBICORT [Suspect]
     Dosage: 160/4.5 MCG, TWO PUFFS BID
     Route: 055
  2. ALBUTEROL [Concomitant]
     Dosage: 90 MCG/1 ACTUATION 2 PUFFS AS REQUIRED.
     Route: 055

REACTIONS (3)
  - ASTHMA [None]
  - DRUG DOSE OMISSION [None]
  - WHEEZING [None]
